FAERS Safety Report 18414317 (Version 1)
Quarter: 2020Q4

REPORT INFORMATION
  Report Type: Spontaneous
  Country: US (occurrence: US)
  Receive Date: 20201022
  Receipt Date: 20201022
  Transmission Date: 20210114
  Serious: Yes (Other)
  Sender: FDA-Public Use
  Company Number: US-BTGSP-US-BTGSP-20-0161

PATIENT
  Age: 53 Year
  Sex: Female

DRUGS (3)
  1. DIGIFAB [Suspect]
     Active Substance: OVINE DIGOXIN IMMUNE FAB
     Dosage: 5 VIALS
  2. DIGIFAB [Suspect]
     Active Substance: OVINE DIGOXIN IMMUNE FAB
     Indication: TOXICITY TO VARIOUS AGENTS
     Dosage: 26 VIALS
     Route: 065
  3. MAGNESIUM [Concomitant]
     Active Substance: MAGNESIUM
     Dosage: UNKNOWN
     Route: 042

REACTIONS (5)
  - Cardiac arrest [Unknown]
  - Arteriosclerosis coronary artery [Unknown]
  - Laboratory test interference [Unknown]
  - Arrhythmia [Unknown]
  - Troponin increased [Unknown]
